FAERS Safety Report 6272312-0 (Version None)
Quarter: 2009Q3

REPORT INFORMATION
  Report Type: 
  Country: None (occurrence: None)
  Receive Date: 20090717
  Receipt Date: 20090710
  Transmission Date: 20100115
  Serious: Yes (Other)
  Sender: FDA-Public Use
  Company Number: ZA-B.I. PHARMACEUTICALS,INC./RIDGEFIELD-2009-BP-06758BP

PATIENT
  Age: 36 Year
  Sex: Female

DRUGS (3)
  1. VIRAMUNE [Suspect]
     Indication: HIV INFECTION
     Dosage: 400 MG
     Route: 048
     Dates: start: 20081009
  2. COMBIVIR [Suspect]
     Indication: HIV INFECTION
     Route: 048
     Dates: start: 20060201
  3. EFAVIRENZ [Suspect]
     Indication: HIV INFECTION
     Dosage: 600 MG
     Route: 048
     Dates: start: 20060201, end: 20081009

REACTIONS (1)
  - STILLBIRTH [None]
